FAERS Safety Report 5264561-5 (Version None)
Quarter: 2007Q1

REPORT INFORMATION
  Report Type: 
  Country: None (occurrence: None)
  Receive Date: 20070314
  Receipt Date: 20070228
  Transmission Date: 20070707
  Serious: Yes (Hospitalization)
  Sender: FDA-Public Use
  Company Number: GBWYE874507SEP06

PATIENT
  Sex: Female
  Weight: 41 kg

DRUGS (12)
  1. ENBREL [Suspect]
     Indication: RHEUMATOID ARTHRITIS
     Route: 058
     Dates: start: 20030201
  2. ACETAMINOPHEN [Concomitant]
     Indication: PAIN
     Route: 048
  3. DICLOFENAC SODIUM [Concomitant]
     Indication: PAIN
     Route: 048
  4. ADCAL D3 [Concomitant]
     Route: 048
  5. ZOLPIDEM [Concomitant]
     Dosage: UNKNOWN
  6. VITAMIN B-12 [Concomitant]
     Indication: VITAMIN B12 DEFICIENCY
     Route: 048
  7. DICONAL [Concomitant]
     Dosage: UNKNWON
  8. DOTHIEPIN HYDROCHLORIDE [Concomitant]
     Indication: MENTAL DISORDER
     Dates: start: 20060801
  9. NABUMETONE [Concomitant]
     Dosage: UNKNOWN
  10. PALFIUM [Concomitant]
     Dosage: UNKNOWN
  11. MST [Concomitant]
     Indication: PAIN
     Route: 048
  12. LANSOPRAZOLE [Concomitant]
     Indication: DYSPEPSIA
     Dosage: 30MG FREQUENCY UNKNOWN
     Route: 048

REACTIONS (2)
  - HALLUCINATION, AUDITORY [None]
  - MENTAL DISORDER [None]
